FAERS Safety Report 8254584 (Version 2)
Quarter: 2014Q2

REPORT INFORMATION
  Report Type: Spontaneous
  Country: FR (occurrence: FR)
  Receive Date: 20111118
  Receipt Date: 20140605
  Transmission Date: 20141212
  Serious: Yes (Life-Threatening, Other)
  Sender: FDA-Public Use
  Company Number: FR-PFIZER INC-2011280273

PATIENT
  Age: 37 Year
  Sex: Female

DRUGS (1)
  1. CYTOTEC [Suspect]
     Indication: PROLONGED PREGNANCY
     Dosage: 50 UG, 2X/DAY
     Route: 067
     Dates: start: 20070213, end: 20070213

REACTIONS (3)
  - Off label use [Recovered/Resolved]
  - Third stage postpartum haemorrhage [Recovered/Resolved]
  - Fibrinolysis [Recovered/Resolved]
